FAERS Safety Report 6742544-3 (Version None)
Quarter: 2010Q2

REPORT INFORMATION
  Report Type: 
  Country: None (occurrence: None)
  Receive Date: 20100524
  Receipt Date: 20100416
  Transmission Date: 20101027
  Serious: No
  Sender: FDA-Public Use
  Company Number: ACO_00716_2010

PATIENT
  Sex: Female
  Weight: 54.4316 kg

DRUGS (6)
  1. AMPYRA [Suspect]
     Indication: MULTIPLE SCLEROSIS
     Dosage: 10 MG BID ORAL
     Route: 048
     Dates: start: 20100414
  2. COPAXONE [Concomitant]
  3. VESICARE [Concomitant]
  4. BACLOFEN [Concomitant]
  5. VITAMIN B-12 [Concomitant]
  6. MULTI-VITAMINS [Concomitant]

REACTIONS (6)
  - ASTHENIA [None]
  - BACK PAIN [None]
  - BALANCE DISORDER [None]
  - BURNING SENSATION [None]
  - INSOMNIA [None]
  - PARAESTHESIA [None]
